FAERS Safety Report 9143838 (Version 1)
Quarter: 2013Q1

REPORT INFORMATION
  Report Type: Spontaneous
  Country: AT (occurrence: AT)
  Receive Date: 20130306
  Receipt Date: 20130306
  Transmission Date: 20140127
  Serious: Yes (Other)
  Sender: FDA-Public Use
  Company Number: AT-ROCHE-1195357

PATIENT
  Age: 62 Year
  Sex: Female

DRUGS (12)
  1. TRASTUZUMAB [Suspect]
     Indication: BREAST CANCER
     Route: 065
     Dates: start: 200609, end: 200909
  2. TRASTUZUMAB [Suspect]
     Route: 065
     Dates: start: 200911, end: 201011
  3. TRASTUZUMAB [Suspect]
     Route: 065
     Dates: start: 201012, end: 201108
  4. TRASTUZUMAB [Suspect]
     Route: 065
     Dates: start: 201110, end: 201206
  5. TRASTUZUMAB [Suspect]
     Route: 065
     Dates: start: 201207, end: 201209
  6. LAPATINIB [Suspect]
     Indication: BREAST CANCER
     Route: 065
     Dates: start: 201012, end: 201104
  7. VINORELBINE [Concomitant]
     Indication: BREAST CANCER
     Route: 065
     Dates: start: 200709, end: 200909
  8. DOCETAXEL [Concomitant]
     Indication: BREAST CANCER
     Route: 065
     Dates: start: 200609, end: 200708
  9. CAPECITABINE [Concomitant]
     Indication: BREAST CANCER
     Route: 065
     Dates: start: 200911, end: 201011
  10. GEMCITABINE [Concomitant]
     Indication: BREAST CANCER
     Route: 065
     Dates: start: 201110, end: 201206
  11. NAB-PACLITAXEL [Concomitant]
     Indication: BREAST CANCER
     Route: 065
     Dates: start: 201207, end: 201209
  12. PEGYLATED LIPOSOMAL DOXORUBICIN [Concomitant]
     Indication: BREAST CANCER
     Dosage: 65.59MG ABSOLUTE,262.36 CUMULATIVE DOSE.
     Route: 065
     Dates: start: 201104, end: 201108

REACTIONS (2)
  - Diarrhoea [Unknown]
  - Malignant neoplasm progression [Unknown]
